FAERS Safety Report 14045606 (Version 2)
Quarter: 2018Q2

REPORT INFORMATION
  Report Type: Spontaneous
  Country: US (occurrence: US)
  Receive Date: 20171005
  Receipt Date: 20180604
  Transmission Date: 20180711
  Serious: Yes (Hospitalization)
  Sender: FDA-Public Use
  Company Number: US-PFIZER INC-2017409479

PATIENT
  Age: 73 Year
  Sex: Female
  Weight: 61.22 kg

DRUGS (4)
  1. IBRANCE [Suspect]
     Active Substance: PALBOCICLIB
     Dosage: 125 MG, ONCE DAILY
     Dates: end: 201709
  2. IBRANCE [Suspect]
     Active Substance: PALBOCICLIB
     Dosage: 125 MG, (ONCE DAILY FOR 21 DAYS THEN 7 DAYS OFF)
     Route: 048
  3. FEMARA [Concomitant]
     Active Substance: LETROZOLE
     Indication: CHEMOTHERAPY
     Dosage: 2.5 MG, ONCE DAILY
     Route: 048
     Dates: start: 201708
  4. IBRANCE [Suspect]
     Active Substance: PALBOCICLIB
     Indication: BREAST CANCER METASTATIC
     Dosage: 125 MG, (ONCE DAILY FOR 21 DAYS THEN 7 DAYS OFF)
     Route: 048
     Dates: start: 201708

REACTIONS (7)
  - Fall [Recovering/Resolving]
  - Impaired healing [Unknown]
  - Dysphagia [Not Recovered/Not Resolved]
  - Lower limb fracture [Recovering/Resolving]
  - Throat irritation [Unknown]
  - Femur fracture [Recovering/Resolving]
  - Product size issue [Unknown]

NARRATIVE: CASE EVENT DATE: 20170913
